FAERS Safety Report 15279585 (Version 1)
Quarter: 2018Q3

REPORT INFORMATION
  Report Type: Spontaneous
  Country: US (occurrence: US)
  Receive Date: 20180815
  Receipt Date: 20180815
  Transmission Date: 20181010
  Serious: No
  Sender: FDA-Public Use
  Company Number: US-PFIZER INC-2018320910

PATIENT
  Age: 67 Year
  Sex: Male

DRUGS (1)
  1. ALDACTONE [Suspect]
     Active Substance: SPIRONOLACTONE
     Dosage: 25 MG, UNK (STARTED AT 25MG THEN 50MG THEN 100MG)
     Dates: start: 201312, end: 201412

REACTIONS (5)
  - Breast enlargement [Unknown]
  - Fall [Unknown]
  - Muscle spasms [Unknown]
  - Contusion [Unknown]
  - Tremor [Unknown]
